FAERS Safety Report 9186751 (Version 1)
Quarter: 2012Q4

REPORT INFORMATION
  Report Type: 
  Country: US (occurrence: US)
  Receive Date: 20121102
  Receipt Date: 20121102
  Transmission Date: 20130627
  Serious: Yes (Other)
  Sender: FDA-Public Use
  Company Number: US-JNJFOC-20121014553

PATIENT
  Age: 40 Year
  Sex: Female

DRUGS (1)
  1. REMICADE [Suspect]
     Indication: PRODUCT USED FOR UNKNOWN INDICATION
     Dosage: on infliximab for 10 years
     Route: 042
     Dates: start: 2002

REACTIONS (3)
  - Basal cell carcinoma [Unknown]
  - Squamous cell carcinoma of skin [Unknown]
  - Skin cancer [Unknown]
